FAERS Safety Report 9277511 (Version 2)
Quarter: 2013Q2

REPORT INFORMATION
  Report Type: Spontaneous
  Country: US (occurrence: US)
  Receive Date: 20130508
  Receipt Date: 20130530
  Transmission Date: 20140414
  Serious: Yes (Hospitalization, Other)
  Sender: FDA-Public Use
  Company Number: US-ELI_LILLY_AND_COMPANY-US201304008555

PATIENT
  Sex: Female

DRUGS (1)
  1. ZYPREXA [Suspect]
     Dosage: UNK UNK, UNKNOWN

REACTIONS (12)
  - Dyspnoea [Unknown]
  - Chest pain [Unknown]
  - Toxicity to various agents [Recovered/Resolved]
  - Diabetic ketoacidosis [Unknown]
  - Diabetes mellitus [Unknown]
  - Eating disorder [Unknown]
  - Polyp [Unknown]
  - Facial spasm [Unknown]
  - Oral disorder [Unknown]
  - Wound [Unknown]
  - Hepatic steatosis [Unknown]
  - Obesity [Unknown]
